FAERS Safety Report 7357297-8 (Version None)
Quarter: 2011Q1

REPORT INFORMATION
  Report Type: 
  Country: None (occurrence: None)
  Receive Date: 20110308
  Receipt Date: 20110224
  Transmission Date: 20110831
  Serious: Yes (Hospitalization)
  Sender: FDA-Public Use
  Company Number: 2011000966

PATIENT
  Age: 74 Year
  Sex: Female
  Weight: 66.6788 kg

DRUGS (11)
  1. COMPAZINE (PROCHLORPERAZINE EPISYLATE) [Concomitant]
  2. SYNTHROID [Concomitant]
  3. POLYETHYLENE GLYCOL [Concomitant]
  4. ORAMORPH SR [Concomitant]
  5. HUMALOG [Concomitant]
  6. VICODIN [Concomitant]
  7. PAZOPANIB/PLACEBO [Suspect]
     Indication: LUNG CANCER METASTATIC
     Dosage: (600 MG,QD),ORAL
     Route: 048
     Dates: start: 20110124, end: 20110224
  8. PRILOSEC [Suspect]
  9. IPRATROPIUM/ALBUTEROL (SALBUTAMOL) [Concomitant]
  10. MUCINEX [Concomitant]
  11. ERLOTINIB HYDROCHLORIDE [Suspect]
     Indication: LUNG CANCER METASTATIC
     Dosage: (150 MG,QD), ORAL
     Route: 048
     Dates: start: 20110124, end: 20110224

REACTIONS (6)
  - CEREBROVASCULAR ACCIDENT [None]
  - MENTAL STATUS CHANGES [None]
  - ENCEPHALOMALACIA [None]
  - HYPERGLYCAEMIA [None]
  - JAUNDICE [None]
  - HYPERBILIRUBINAEMIA [None]
